FAERS Safety Report 19728990 (Version 1)
Quarter: 2021Q3

REPORT INFORMATION
  Report Type: Spontaneous
  Country: HR (occurrence: HR)
  Receive Date: 20210820
  Receipt Date: 20210820
  Transmission Date: 20211014
  Serious: Yes (Hospitalization)
  Sender: FDA-Public Use
  Company Number: HR-TEVA-2021-HR-1942840

PATIENT
  Age: 54 Year
  Sex: Female

DRUGS (3)
  1. KLAVOCIN BID [Suspect]
     Active Substance: AMOXICILLIN\CLAVULANATE POTASSIUM
     Indication: ARTHROPOD BITE
     Dosage: 3 MG
     Route: 048
     Dates: start: 20210717, end: 20210720
  2. NIBEL [Concomitant]
     Indication: BLOOD PRESSURE INCREASED
     Dosage: UNK
     Route: 048
  3. AMLOPIN [Concomitant]
     Indication: BLOOD PRESSURE INCREASED
     Dosage: UNK
     Route: 048

REACTIONS (2)
  - Lip swelling [Recovering/Resolving]
  - Skin burning sensation [Recovering/Resolving]

NARRATIVE: CASE EVENT DATE: 20210720
